FAERS Safety Report 7287816-1 (Version None)
Quarter: 2011Q1

REPORT INFORMATION
  Report Type: 
  Country: None (occurrence: None)
  Receive Date: 20110208
  Receipt Date: 20110208
  Transmission Date: 20110831
  Serious: No
  Sender: FDA-Public Use
  Company Number: None

PATIENT
  Age: 68 Year
  Sex: Male
  Weight: 104.3273 kg

DRUGS (1)
  1. SPIRIVA [Suspect]
     Indication: EMPHYSEMA
     Dosage: 1 CAPSULE DAILY INHAL
     Route: 055
     Dates: start: 20091212, end: 20110204

REACTIONS (1)
  - INCORRECT DOSE ADMINISTERED BY DEVICE [None]
